FAERS Safety Report 10428622 (Version 1)
Quarter: 2014Q3

REPORT INFORMATION
  Report Type: Spontaneous
  Country: GB (occurrence: None)
  Receive Date: 20140829
  Receipt Date: 20140829
  Transmission Date: 20150326
  Serious: Yes (Other)
  Sender: FDA-Public Use
  Company Number: GB-AIKEM-000695

PATIENT
  Age: 17 Year
  Sex: Female
  Weight: 62 kg

DRUGS (2)
  1. ABILIFY [Suspect]
     Active Substance: ARIPIPRAZOLE
     Indication: SOMNOLENCE
     Route: 048
     Dates: start: 201401, end: 20140518
  2. QUETIAPINE (QUETIAPINE) [Suspect]
     Active Substance: QUETIAPINE
     Indication: PRODUCT USED FOR UNKNOWN INDICATION
     Route: 048
     Dates: start: 20140508

REACTIONS (6)
  - Libido increased [None]
  - Autism [None]
  - Sleep disorder [None]
  - Off label use [None]
  - Abnormal behaviour [None]
  - Disinhibition [None]

NARRATIVE: CASE EVENT DATE: 20140330
